FAERS Safety Report 21440545 (Version 1)
Quarter: 2022Q4

REPORT INFORMATION
  Report Type: Spontaneous
  Country: US (occurrence: US)
  Receive Date: 20221011
  Receipt Date: 20221011
  Transmission Date: 20230112
  Serious: No
  Sender: FDA-Public Use
  Company Number: US-XERIS PHARMACEUTICALS-2022XER00334

PATIENT
  Sex: Female

DRUGS (1)
  1. GVOKE [Suspect]
     Active Substance: GLUCAGON
     Indication: Blood glucose decreased
     Dosage: 1 MG
     Dates: start: 20220914

REACTIONS (2)
  - Device breakage [Not Recovered/Not Resolved]
  - Product storage error [Recovered/Resolved]

NARRATIVE: CASE EVENT DATE: 20220914
